FAERS Safety Report 8391126-9 (Version None)
Quarter: 2012Q1

REPORT INFORMATION
  Report Type: 
  Country: None (occurrence: None)
  Receive Date: 20120323
  Receipt Date: 20110523
  Transmission Date: 20120608
  Serious: Yes (Hospitalization)
  Sender: FDA-Public Use
  Company Number: 163-21880-11042417

PATIENT
  Age: 79 Year
  Sex: Female
  Weight: 60.78 kg

DRUGS (9)
  1. POTASSIUM CHLORIDE [Concomitant]
  2. REVLIMID [Suspect]
     Indication: MULTIPLE MYELOMA
     Dosage: 25 MG, DAILY FOR 21 DAYS, PO
     Route: 048
     Dates: start: 20110211
  3. METFFORMIN HYDROCHLORIDE [Concomitant]
  4. IRON (IRON) [Concomitant]
  5. PRILOSEC [Concomitant]
  6. DECADRON [Concomitant]
  7. ASPIRIN [Concomitant]
  8. ALLOPURINOL [Concomitant]
  9. VICODIN [Concomitant]

REACTIONS (2)
  - WHITE BLOOD CELL COUNT DECREASED [None]
  - PNEUMONIA [None]
